FAERS Safety Report 25727008 (Version 2)
Quarter: 2025Q3

REPORT INFORMATION
  Report Type: Report from Study
  Country: AR (occurrence: AR)
  Receive Date: 20250826
  Receipt Date: 20250830
  Transmission Date: 20251021
  Serious: Yes (Hospitalization, Other)
  Sender: NOVARTIS
  Company Number: AR-002147023-NVSC2025AR127800

PATIENT
  Age: 40 Year
  Sex: Female

DRUGS (2)
  1. COSENTYX [Suspect]
     Active Substance: SECUKINUMAB
     Indication: Axial spondyloarthritis
     Dosage: 300 MG, QMO
     Route: 058
     Dates: start: 20241212, end: 20250621
  2. COSENTYX [Suspect]
     Active Substance: SECUKINUMAB
     Indication: Psoriasis
     Route: 065
     Dates: start: 2024

REACTIONS (10)
  - Pneumonia [Recovered/Resolved]
  - Pyrexia [Unknown]
  - Pleural effusion [Recovered/Resolved]
  - Urinoma [Unknown]
  - White blood cell count abnormal [Unknown]
  - Immunodeficiency [Unknown]
  - Rib fracture [Unknown]
  - Fall [Unknown]
  - Cough [Unknown]
  - Musculoskeletal chest pain [Unknown]

NARRATIVE: CASE EVENT DATE: 20250802
